FAERS Safety Report 26021262 (Version 1)
Quarter: 2025Q4

REPORT INFORMATION
  Report Type: Spontaneous
  Country: EU (occurrence: EU)
  Receive Date: 20251110
  Receipt Date: 20251110
  Transmission Date: 20260117
  Serious: Yes (Life-Threatening, Hospitalization)
  Sender: PFIZER
  Company Number: EU-PFIZER INC-PV202500129791

PATIENT
  Age: 53 Year
  Sex: Male

DRUGS (12)
  1. LINEZOLID [Suspect]
     Active Substance: LINEZOLID
     Indication: Corynebacterium infection
     Dosage: 600 MG, 2X/DAY (EVERY 12 HOURS)
     Route: 048
     Dates: start: 202202, end: 2022
  2. LINEZOLID [Suspect]
     Active Substance: LINEZOLID
     Indication: Device related infection
  3. PIPERACILLIN SODIUM\TAZOBACTAM SODIUM [Suspect]
     Active Substance: PIPERACILLIN SODIUM\TAZOBACTAM SODIUM
     Indication: Corynebacterium infection
     Dosage: 4.5 G, 4X/DAY
     Dates: start: 202206, end: 202206
  4. PIPERACILLIN SODIUM\TAZOBACTAM SODIUM [Suspect]
     Active Substance: PIPERACILLIN SODIUM\TAZOBACTAM SODIUM
     Indication: Device related infection
  5. VANCOMYCIN [Suspect]
     Active Substance: VANCOMYCIN
     Indication: Corynebacterium infection
     Dosage: 15 MG/KG, 2X/DAY, AFTER LOADING DOSE
     Route: 042
     Dates: start: 202202
  6. VANCOMYCIN [Suspect]
     Active Substance: VANCOMYCIN
     Indication: Device related infection
     Dosage: 15 MG/KG, 2X/DAY, AFTER LOADING DOSE, LOADING DOSE
     Route: 042
     Dates: start: 202206
  7. TEDIZOLID [Suspect]
     Active Substance: TEDIZOLID
     Indication: Device related infection
     Dosage: 200 MG, 1X/DAY
     Route: 048
     Dates: start: 2022, end: 2022
  8. TEDIZOLID [Suspect]
     Active Substance: TEDIZOLID
     Indication: Corynebacterium infection
  9. TEICOPLANIN [Suspect]
     Active Substance: TEICOPLANIN
     Indication: Corynebacterium infection
     Dosage: 12 MG/KG, 1X/DAY, AFTER LOADING DOSE
     Dates: start: 2022, end: 2022
  10. TEICOPLANIN [Suspect]
     Active Substance: TEICOPLANIN
     Indication: Device related infection
  11. DALBAVANCIN [Suspect]
     Active Substance: DALBAVANCIN
     Indication: Corynebacterium infection
     Dosage: 1500 MG, CYCLIC (ON DAYS 0 AND 14)
     Route: 042
     Dates: start: 2022
  12. DALBAVANCIN [Suspect]
     Active Substance: DALBAVANCIN
     Indication: Device related infection
     Dosage: UNK
     Route: 042
     Dates: start: 202402, end: 202410

REACTIONS (1)
  - Drug ineffective [Unknown]

NARRATIVE: CASE EVENT DATE: 20220101
